FAERS Safety Report 14972566 (Version 1)
Quarter: 2018Q2

REPORT INFORMATION
  Report Type: Spontaneous
  Country: US (occurrence: US)
  Receive Date: 20180605
  Receipt Date: 20180605
  Transmission Date: 20180711
  Serious: No
  Sender: FDA-Public Use
  Company Number: US-AUROBINDO-AUR-APU-2017-44687

PATIENT
  Age: 91 Year
  Sex: Male
  Weight: 140 kg

DRUGS (8)
  1. ACETAMINOPHEN AND CODEINE PHOSPHATE TABLETS USP, 300 MG/60 MG [Suspect]
     Active Substance: ACETAMINOPHEN\CODEINE PHOSPHATE
     Indication: SPINAL OSTEOARTHRITIS
  2. ACETAMINOPHEN AND CODEINE PHOSPHATE TABLETS USP, 300 MG/60 MG [Suspect]
     Active Substance: ACETAMINOPHEN\CODEINE PHOSPHATE
     Indication: ARTHRITIS
     Dosage: UNK
     Dates: start: 201611, end: 20171204
  3. ACETAMINOPHEN AND CODEINE PHOSPHATE TABLETS USP, 300 MG/60 MG [Suspect]
     Active Substance: ACETAMINOPHEN\CODEINE PHOSPHATE
     Indication: BACK PAIN
  4. RAMIPRIL. [Concomitant]
     Active Substance: RAMIPRIL
     Indication: BLOOD PRESSURE MEASUREMENT
     Dosage: UNK
  5. ACETAMINOPHEN AND CODEINE PHOSPHATE TABLETS USP, 300 MG/60 MG [Suspect]
     Active Substance: ACETAMINOPHEN\CODEINE PHOSPHATE
     Indication: MIGRAINE
     Dosage: UNK UNK, FOUR TIMES/DAY
     Dates: start: 201611
  6. ACETAMINOPHEN AND CODEINE PHOSPHATE TABLETS USP, 300 MG/60 MG [Suspect]
     Active Substance: ACETAMINOPHEN\CODEINE PHOSPHATE
     Indication: HIP FRACTURE
  7. METOPROLOL. [Concomitant]
     Active Substance: METOPROLOL
     Indication: PRODUCT USED FOR UNKNOWN INDICATION
     Dosage: 1 IN THE MORNING
  8. TYLENOL WITH CODEINE [Concomitant]
     Active Substance: ACETAMINOPHEN\CODEINE PHOSPHATE
     Indication: PRODUCT USED FOR UNKNOWN INDICATION
     Dosage: UNK
     Route: 065
     Dates: start: 20170719, end: 20171018

REACTIONS (1)
  - Drug ineffective [Recovering/Resolving]

NARRATIVE: CASE EVENT DATE: 20170721
